FAERS Safety Report 9424205 (Version 1)
Quarter: 2013Q3

REPORT INFORMATION
  Report Type: Report from Study
  Country: US (occurrence: US)
  Receive Date: 20130729
  Receipt Date: 20130729
  Transmission Date: 20140515
  Serious: Yes (Hospitalization)
  Sender: FDA-Public Use
  Company Number: US-ROCHE-1254251

PATIENT
  Age: 48 Year
  Sex: Male

DRUGS (11)
  1. LUCENTIS [Suspect]
     Indication: DIABETIC RETINAL OEDEMA
     Dosage: BOTH EYE
     Route: 050
  2. AMLODIPINE [Concomitant]
     Route: 048
  3. ASPIRIN [Concomitant]
     Dosage: LOW DOSE
     Route: 048
  4. CLONIDINE [Concomitant]
     Route: 048
  5. DOXAZOSIN [Concomitant]
     Dosage: AT NIGHT
     Route: 048
  6. FUROSEMIDE [Concomitant]
     Route: 048
  7. HUMULIN [Concomitant]
     Dosage: 100UNITS/ML SOLUTION
     Route: 065
  8. LABETALOL [Concomitant]
     Route: 048
  9. MINOXIDIL [Concomitant]
     Route: 048
  10. PRAVASTATIN SODIUM [Concomitant]
     Route: 048
  11. CALCIUM ACETATE [Concomitant]
     Route: 065

REACTIONS (3)
  - Fluid retention [Unknown]
  - Oxygen saturation decreased [Unknown]
  - Vitreous floaters [Unknown]
